FAERS Safety Report 5820241-6 (Version None)
Quarter: 2008Q3

REPORT INFORMATION
  Report Type: 
  Country: None (occurrence: None)
  Receive Date: 20080722
  Receipt Date: 20080722
  Transmission Date: 20090109
  Serious: No
  Sender: FDA-Public Use
  Company Number: None

PATIENT
  Age: 52 Year
  Sex: Male

DRUGS (1)
  1. DOXYCYCLINE HCL [Suspect]
     Indication: ARTHROPOD BITE
     Dosage: 100 MG BID PO
     Route: 048
     Dates: start: 20080716, end: 20080721

REACTIONS (2)
  - LOCAL SWELLING [None]
  - OEDEMA MOUTH [None]
